FAERS Safety Report 14299677 (Version 1)
Quarter: 2017Q4

REPORT INFORMATION
  Report Type: Spontaneous
  Country: US (occurrence: US)
  Receive Date: 20171219
  Receipt Date: 20171219
  Transmission Date: 20180321
  Serious: Yes (Death)
  Sender: FDA-Public Use
  Company Number: US-ASTRAZENECA-2017SF27346

PATIENT
  Age: 22658 Day
  Sex: Male

DRUGS (5)
  1. VFEND [Concomitant]
     Active Substance: VORICONAZOLE
     Indication: ASPERGILLUS INFECTION
  2. SYMBICORT [Suspect]
     Active Substance: BUDESONIDE\FORMOTEROL FUMARATE DIHYDRATE
     Indication: DYSPNOEA
     Dosage: 160/4.5 MCG TWO PUFFS ONCE A DAY
     Route: 055
     Dates: start: 201005, end: 20171004
  3. LASIX [Concomitant]
     Active Substance: FUROSEMIDE
     Indication: SWELLING
     Dates: start: 201708, end: 20171004
  4. LATANOPROST. [Concomitant]
     Active Substance: LATANOPROST
     Indication: GLAUCOMA
     Route: 047
     Dates: start: 201005, end: 20171004
  5. PREDNISOLONE. [Concomitant]
     Active Substance: PREDNISOLONE
     Route: 047
     Dates: start: 201708, end: 20171004

REACTIONS (4)
  - Cardiac failure congestive [Fatal]
  - Aspergillus infection [Unknown]
  - Glaucoma [Unknown]
  - Swelling [Unknown]

NARRATIVE: CASE EVENT DATE: 20171004
